FAERS Safety Report 19873853 (Version 1)
Quarter: 2021Q3

REPORT INFORMATION
  Report Type: Spontaneous
  Country: ES (occurrence: ES)
  Receive Date: 20210922
  Receipt Date: 20210922
  Transmission Date: 20211014
  Serious: Yes (Disabling)
  Sender: FDA-Public Use
  Company Number: ES-ABBVIE-21K-144-4087284-00

PATIENT
  Sex: Female

DRUGS (1)
  1. DEPAKINE [Suspect]
     Active Substance: VALPROATE SODIUM
     Indication: MATERNAL EXPOSURE TIMING UNSPECIFIED
     Route: 064

REACTIONS (6)
  - Motor developmental delay [Unknown]
  - Autism spectrum disorder [Unknown]
  - Deafness [Not Recovered/Not Resolved]
  - Dependence [Unknown]
  - Disability [Unknown]
  - Foetal exposure during pregnancy [Unknown]
